FAERS Safety Report 4979943-6 (Version None)
Quarter: 2006Q2

REPORT INFORMATION
  Report Type: 
  Country: None (occurrence: None)
  Receive Date: 20060421
  Receipt Date: 20060316
  Transmission Date: 20061013
  Serious: Yes (Hospitalization)
  Sender: FDA-Public Use
  Company Number: US-MERCK-0603USA02828

PATIENT
  Age: 52 Year

DRUGS (6)
  1. VICODIN [Concomitant]
     Route: 065
  2. FOSAMAX [Suspect]
     Indication: OSTEOPOROSIS
     Route: 048
     Dates: start: 20040801, end: 20060201
  3. ESTRADIOL AND ESTRIOL AND ESTRONE [Concomitant]
     Route: 065
  4. [THERAPY UNSPECIFIED] [Concomitant]
     Indication: THYROID DISORDER
     Route: 065
  5. NEURONTIN [Concomitant]
     Route: 065
  6. ZOMIG [Concomitant]
     Route: 065

REACTIONS (2)
  - IMPAIRED HEALING [None]
  - NEURALGIA [None]
